FAERS Safety Report 26048625 (Version 1)
Quarter: 2025Q4

REPORT INFORMATION
  Report Type: Spontaneous
  Country: US (occurrence: US)
  Receive Date: 20251114
  Receipt Date: 20251114
  Transmission Date: 20260117
  Serious: Yes (Other)
  Sender: GLAXOSMITHKLINE
  Company Number: US-GSK-US2025AMR142198

PATIENT
  Sex: Female

DRUGS (3)
  1. VALTREX [Suspect]
     Active Substance: VALACYCLOVIR HYDROCHLORIDE
     Indication: HIV infection
     Dosage: UNK
  2. SYMTUZA [Concomitant]
     Active Substance: COBICISTAT\DARUNAVIR\EMTRICITABINE\TENOFOVIR ALAFENAMIDE
     Indication: Product used for unknown indication
     Dosage: UNK, QD
  3. RUKOBIA [Concomitant]
     Active Substance: FOSTEMSAVIR TROMETHAMINE
     Indication: Product used for unknown indication
     Dosage: UNK UNK, BID
     Dates: start: 2023

REACTIONS (1)
  - Hallucination [Recovered/Resolved]
